FAERS Safety Report 7064699-6 (Version None)
Quarter: 2010Q4

REPORT INFORMATION
  Report Type: 
  Country: None (occurrence: None)
  Receive Date: 20101027
  Receipt Date: 19900213
  Transmission Date: 20110411
  Serious: Yes (Death)
  Sender: FDA-Public Use
  Company Number: US-ROCHE-12986

PATIENT
  Age: 38 Year
  Sex: Female

DRUGS (6)
  1. CYTOVENE [Suspect]
     Indication: PRODUCT USED FOR UNKNOWN INDICATION
     Route: 042
     Dates: start: 19900207
  2. ERYTHROMYCIN [Concomitant]
  3. PREDNISONE [Concomitant]
  4. IMIPENEM [Concomitant]
     Route: 042
  5. H2 BLOCKER [Concomitant]
  6. ANTIBIOTICS NOS [Concomitant]

REACTIONS (3)
  - ACIDOSIS [None]
  - DEATH [None]
  - HYPOTENSION [None]
